FAERS Safety Report 5886708-X (Version None)
Quarter: 2008Q3

REPORT INFORMATION
  Report Type: 
  Country: None (occurrence: None)
  Receive Date: 20080917
  Receipt Date: 20080910
  Transmission Date: 20090109
  Serious: Yes (Other)
  Sender: FDA-Public Use
  Company Number: PHHY2008FR20553

PATIENT
  Age: 77 Year
  Sex: Female

DRUGS (3)
  1. EXELON [Suspect]
     Indication: DEMENTIA WITH LEWY BODIES
     Dosage: 9.5 MG DALY
     Route: 062
  2. OXAZEPAM [Concomitant]
     Dosage: UNK
  3. IMOVANE [Concomitant]
     Dosage: UNK

REACTIONS (3)
  - ANXIETY [None]
  - FEELING ABNORMAL [None]
  - HALLUCINATION [None]
